FAERS Safety Report 22110513 (Version 2)
Quarter: 2023Q2

REPORT INFORMATION
  Report Type: Report from Study
  Country: US (occurrence: None)
  Receive Date: 20230317
  Receipt Date: 20230410
  Transmission Date: 20230722
  Serious: No
  Sender: FDA-Public Use
  Company Number: 2023A062004

PATIENT
  Age: 77 Year

DRUGS (2)
  1. BREZTRI [Suspect]
     Active Substance: BUDESONIDE\FORMOTEROL\GLYCOPYRROLATE
     Route: 055
  2. ASTRAZENECA COVID-19 VACCINE [Suspect]
     Active Substance: AZD-1222

REACTIONS (1)
  - No adverse event [Unknown]
